FAERS Safety Report 8808993 (Version 1)
Quarter: 2012Q4

REPORT INFORMATION
  Report Type: Spontaneous
  Country: US (occurrence: None)
  Receive Date: 20120920
  Receipt Date: 20120920
  Transmission Date: 20130627
  Serious: Yes (Life-Threatening, Hospitalization, Disabling)
  Sender: FDA-Public Use
  Company Number: None

PATIENT
  Age: 17 Year
  Sex: Female
  Weight: 83.46 kg

DRUGS (1)
  1. NUVARING [Suspect]
     Dosage: 1 ring for 3 weks vag
     Route: 067
     Dates: start: 20120701, end: 20120914

REACTIONS (4)
  - Headache [None]
  - Vomiting [None]
  - Paraesthesia [None]
  - Intracranial venous sinus thrombosis [None]
